FAERS Safety Report 17979529 (Version 6)
Quarter: 2021Q1

REPORT INFORMATION
  Report Type: Report from Study
  Country: PL (occurrence: PL)
  Receive Date: 20200703
  Receipt Date: 20210304
  Transmission Date: 20210419
  Serious: Yes (Hospitalization)
  Sender: FDA-Public Use
  Company Number: NVSC2020PL186548

PATIENT
  Age: 24 Year
  Sex: Male
  Weight: 73.5 kg

DRUGS (2)
  1. GENTAMICIN. [Concomitant]
     Active Substance: GENTAMICIN
     Indication: PSEUDOMONAS INFECTION
     Dosage: UNK
     Route: 065
     Dates: start: 20200617, end: 20200801
  2. SECUKINUMAB. [Suspect]
     Active Substance: SECUKINUMAB
     Indication: HIDRADENITIS
     Dosage: 30 MG, Q4W
     Route: 058
     Dates: start: 20191204

REACTIONS (1)
  - Scrotal inflammation [Recovered/Resolved]

NARRATIVE: CASE EVENT DATE: 20200701
